FAERS Safety Report 9814699 (Version 2)
Quarter: 2014Q2

REPORT INFORMATION
  Report Type: Spontaneous
  Country: GB (occurrence: GB)
  Receive Date: 20140113
  Receipt Date: 20140501
  Transmission Date: 20141212
  Serious: Yes (Other)
  Sender: FDA-Public Use
  Company Number: PHHY2014GB002401

PATIENT
  Sex: 0

DRUGS (1)
  1. SERTRALINE [Suspect]
     Indication: DEPRESSION
     Dosage: MATERNAL DOSE OF 50 MG
     Route: 064

REACTIONS (4)
  - Foetal growth restriction [Recovered/Resolved]
  - Foetal placental thrombosis [Unknown]
  - Underweight [Not Recovered/Not Resolved]
  - Foetal exposure during pregnancy [Unknown]
